FAERS Safety Report 8646128 (Version 2)
Quarter: 2012Q4

REPORT INFORMATION
  Report Type: 
  Country: US (occurrence: US)
  Receive Date: 20120702
  Receipt Date: 20120928
  Transmission Date: 20130627
  Serious: Yes (Other)
  Sender: FDA-Public Use
  Company Number: US-US-EMD SERONO, INC.-7143547

PATIENT
  Sex: Female

DRUGS (1)
  1. REBIF [Suspect]
     Indication: MULTIPLE SCLEROSIS
     Route: 058
     Dates: start: 20030120

REACTIONS (4)
  - Colon polypectomy [Unknown]
  - Renal cyst [Not Recovered/Not Resolved]
  - Bladder cyst [Not Recovered/Not Resolved]
  - Skin reaction [Unknown]
